FAERS Safety Report 6515346-0 (Version None)
Quarter: 2009Q4

REPORT INFORMATION
  Report Type: 
  Country: None (occurrence: None)
  Receive Date: 20091223
  Receipt Date: 20091216
  Transmission Date: 20100525
  Serious: Yes (Other)
  Sender: FDA-Public Use
  Company Number: US-ROCHE-669361

PATIENT
  Sex: Female
  Weight: 67.2 kg

DRUGS (1)
  1. BONIVA [Suspect]
     Indication: OSTEOPOROSIS
     Dosage: FORM: PILL; FREQUENCY: 8 MONTH
     Route: 048
     Dates: start: 20090725, end: 20090911

REACTIONS (2)
  - ARTHRALGIA [None]
  - JOINT SWELLING [None]
